FAERS Safety Report 4914847-6 (Version None)
Quarter: 2006Q1

REPORT INFORMATION
  Report Type: 
  Country: None (occurrence: None)
  Receive Date: 20060217
  Receipt Date: 20060210
  Transmission Date: 20060701
  Serious: Yes (Hospitalization, Disabling, Other)
  Sender: FDA-Public Use
  Company Number: PHEH2006US02015

PATIENT
  Age: 49 Year
  Sex: Male

DRUGS (6)
  1. LAMISIL [Suspect]
     Indication: NAIL TINEA
     Dosage: 250 MG, QD
     Route: 048
     Dates: start: 20051121, end: 20060210
  2. DULOXETINE HYDROCHLORIDE [Suspect]
     Indication: DEPRESSION
     Dosage: 60 MG, QD
     Route: 048
  3. QUETIAPINE [Suspect]
     Indication: DEPRESSION
     Dosage: 200 MG, QD
     Route: 048
  4. MIRTAZAPINE [Suspect]
     Indication: DEPRESSION
     Dosage: 15 MG, QD
     Route: 048
  5. VENLAFAXINE HCL [Suspect]
     Indication: DEPRESSION
     Dosage: 300 MG, QD
     Route: 048
  6. TEMAZEPAM [Concomitant]
     Indication: INSOMNIA
     Dosage: 30 MG, QD
     Route: 048

REACTIONS (4)
  - DEPRESSION [None]
  - DRUG INTERACTION [None]
  - ELECTROCONVULSIVE THERAPY [None]
  - SUICIDAL IDEATION [None]
